FAERS Safety Report 20527442 (Version 1)
Quarter: 2022Q1

REPORT INFORMATION
  Report Type: Spontaneous
  Country: FR (occurrence: None)
  Receive Date: 20220228
  Receipt Date: 20220228
  Transmission Date: 20220423
  Serious: Yes (Life-Threatening, Hospitalization, Other)
  Sender: FDA-Public Use
  Company Number: 2022A058378

PATIENT
  Age: 20005 Day
  Sex: Male
  Weight: 103 kg

DRUGS (8)
  1. DAPAGLIFLOZIN [Suspect]
     Active Substance: DAPAGLIFLOZIN
     Indication: Type 2 diabetes mellitus
     Dosage: 10.0MG UNKNOWN
     Route: 048
     Dates: start: 20211110, end: 20211117
  2. ELIQUIS [Concomitant]
     Active Substance: APIXABAN
     Indication: Arrhythmia
     Route: 065
  3. CORDARONE [Concomitant]
     Active Substance: AMIODARONE HYDROCHLORIDE
  4. BISOPROLOL [Concomitant]
     Active Substance: BISOPROLOL
  5. LERCANIDIPINE [Concomitant]
     Active Substance: LERCANIDIPINE
  6. LISOPRINOSIL [Concomitant]
  7. ESIDREX [Concomitant]
     Active Substance: HYDROCHLOROTHIAZIDE
  8. AMLODIPINE BESYLATE [Concomitant]
     Active Substance: AMLODIPINE BESYLATE

REACTIONS (3)
  - Fournier^s gangrene [Recovering/Resolving]
  - Septic shock [Recovering/Resolving]
  - Pelvic abscess [Recovering/Resolving]

NARRATIVE: CASE EVENT DATE: 20211117
